FAERS Safety Report 6138954-8 (Version None)
Quarter: 2009Q1

REPORT INFORMATION
  Report Type: 
  Country: None (occurrence: None)
  Receive Date: 20090324
  Receipt Date: 20090316
  Transmission Date: 20090719
  Serious: Yes (Life-Threatening, Hospitalization)
  Sender: FDA-Public Use
  Company Number: AE-2008-062

PATIENT
  Age: 54 Year
  Sex: Male
  Weight: 78 kg

DRUGS (3)
  1. BISOPROLOL 5 MG FILM COATED TAB. [Suspect]
     Indication: CORONARY ARTERY DISEASE
     Dosage: BID, ORALLY
     Route: 048
  2. RAMIPRIL [Suspect]
     Indication: HYPERTENSION
     Dosage: ONCE, ORALLY
     Route: 048
  3. PREGABALIN [Concomitant]

REACTIONS (2)
  - DEHYDRATION [None]
  - INTERNATIONAL NORMALISED RATIO INCREASED [None]
